FAERS Safety Report 10418658 (Version 1)
Quarter: 2014Q3

REPORT INFORMATION
  Report Type: Spontaneous
  Country: US (occurrence: None)
  Receive Date: 20140828
  Receipt Date: 20140828
  Transmission Date: 20150326
  Serious: Yes (Hospitalization, Disabling)
  Sender: FDA-Public Use
  Company Number: None

PATIENT
  Age: 20 Year
  Sex: Male
  Weight: 49.44 kg

DRUGS (2)
  1. ISOTRETINOIN [Suspect]
     Active Substance: ISOTRETINOIN
     Indication: ACNE CYSTIC
     Dosage: BY MOUTH?STARTED TAKING 2011?STOPPED TAKING 2.3 MONTHS AFTER
     Route: 048
     Dates: start: 2011
  2. ZYPREXA [Concomitant]
     Active Substance: OLANZAPINE

REACTIONS (3)
  - Aggression [None]
  - Thinking abnormal [None]
  - Mental disorder [None]

NARRATIVE: CASE EVENT DATE: 2011
